FAERS Safety Report 6927238-3 (Version None)
Quarter: 2010Q3

REPORT INFORMATION
  Report Type: 
  Country: None (occurrence: None)
  Receive Date: 20100817
  Receipt Date: 20100809
  Transmission Date: 20110219
  Serious: Yes (Hospitalization, Other)
  Sender: FDA-Public Use
  Company Number: US-BIOGENIDEC-2010BI020833

PATIENT
  Age: 32 Year
  Sex: Female

DRUGS (1)
  1. TYSABRI [Suspect]
     Indication: MULTIPLE SCLEROSIS
     Route: 042
     Dates: start: 20090724

REACTIONS (6)
  - ASTHENIA [None]
  - BALANCE DISORDER [None]
  - DEVICE RELATED INFECTION [None]
  - INFUSION SITE INFECTION [None]
  - MULTIPLE SCLEROSIS [None]
  - THROMBOSIS [None]
